FAERS Safety Report 10486760 (Version 1)
Quarter: 2014Q4

REPORT INFORMATION
  Report Type: Report from Study
  Country: ES (occurrence: SE)
  Receive Date: 20141001
  Receipt Date: 20141001
  Transmission Date: 20150528
  Serious: Yes (Other)
  Sender: FDA-Public Use
  Company Number: SE-FRI-1000071088

PATIENT
  Age: 72 Year
  Sex: Female
  Weight: 78 kg

DRUGS (20)
  1. SAROTEN [Concomitant]
     Active Substance: AMITRIPTYLINE
     Dosage: 2 DOSAGE FORMS
     Dates: start: 20121103
  2. SERTRALINE [Concomitant]
     Active Substance: SERTRALINE HYDROCHLORIDE
     Dosage: 0.5 DOSAGE FORMS
     Dates: start: 20120518
  3. ZOPIKLON [Concomitant]
     Active Substance: ZOPICLONE
     Dates: start: 20140407
  4. ACLIDINIUM [Suspect]
     Active Substance: ACLIDINIUM BROMIDE
     Indication: CHRONIC OBSTRUCTIVE PULMONARY DISEASE
     Dosage: 644 MCG
     Dates: start: 20140619, end: 20140629
  5. OMEPRAZOL [Concomitant]
     Active Substance: OMEPRAZOLE
     Dosage: 1 DOSAGE FORMS
     Dates: start: 20120405
  6. INOLAXOL [Concomitant]
     Dosage: 1 DOSE BAG IN THE MORNING
     Dates: start: 20111219
  7. PRONAXEN [Concomitant]
     Active Substance: NAPROXEN
     Dates: start: 20070723
  8. BRICANYL [Concomitant]
     Active Substance: TERBUTALINE SULFATE
     Dates: start: 20120109
  9. BETNOVAT CREME [Concomitant]
     Dates: start: 20131118
  10. XYLOPROCT [Concomitant]
     Dates: start: 20121103
  11. IMOVANE [Concomitant]
     Active Substance: ZOPICLONE
     Dates: start: 20090909
  12. SOBRIL [Concomitant]
     Active Substance: OXAZEPAM
     Dates: start: 20090429
  13. ACLIDINIUM [Suspect]
     Active Substance: ACLIDINIUM BROMIDE
     Dosage: 644 MCG
  14. INDERAL [Concomitant]
     Active Substance: PROPRANOLOL HYDROCHLORIDE
     Dosage: 1TABLET IN THE MORNING 1/2 IN THE AFTERNOON AND EVENING
     Dates: start: 20121227
  15. MOLLIPECT ORAL [Concomitant]
     Route: 048
     Dates: start: 20120904
  16. BEHEPAN [Concomitant]
     Active Substance: HYDROXOCOBALAMIN
     Dosage: 1 MG
     Dates: start: 20071129
  17. FLUTIFORM INH [Concomitant]
     Dosage: 1 TO 2 INHALATIONS
     Route: 055
     Dates: start: 20140604
  18. FURIX [Concomitant]
     Active Substance: FUROSEMIDE
     Dates: start: 20120217
  19. MINIDERM CREME [Concomitant]
     Dates: start: 20100809
  20. ALVEDON [Concomitant]
     Active Substance: ACETAMINOPHEN
     Dates: start: 20070121

REACTIONS (1)
  - Dysphonia [Recovered/Resolved]

NARRATIVE: CASE EVENT DATE: 20140625
